FAERS Safety Report 10168942 (Version 1)
Quarter: 2014Q2

REPORT INFORMATION
  Report Type: Spontaneous
  Country: US (occurrence: None)
  Receive Date: 20140509
  Receipt Date: 20140509
  Transmission Date: 20141212
  Serious: Yes (Death)
  Sender: FDA-Public Use
  Company Number: FK201401631

PATIENT
  Age: 4 Week
  Sex: Female

DRUGS (3)
  1. PROPOFOL (MANUFACTURER UNKNOWN) (PROPOFOL) (PROPOFOL) [Suspect]
     Indication: GENERAL ANAESTHESIA
     Dosage: 200 MICROGRAM/KG/MIN, INTRAVENOUS
  2. FENTANYL (FENTANYL) [Suspect]
     Indication: GENERAL ANAESTHESIA
  3. ROCURONIUM (ROCURONIUM) [Suspect]
     Indication: GENERAL ANAESTHESIA

REACTIONS (4)
  - Lactic acidosis [None]
  - Sinus bradycardia [None]
  - Metabolic acidosis [None]
  - Respiratory acidosis [None]
